FAERS Safety Report 17350316 (Version 1)
Quarter: 2020Q1

REPORT INFORMATION
  Report Type: Spontaneous
  Country: US (occurrence: US)
  Receive Date: 20200130
  Receipt Date: 20200130
  Transmission Date: 20200409
  Serious: No
  Sender: FDA-Public Use
  Company Number: US-AUROBINDO-AUR-APL-2019-004574

PATIENT

DRUGS (3)
  1. DULOXETINE DELAYED-RELEASE CAPSULES USP 60 MG [Suspect]
     Active Substance: DULOXETINE HYDROCHLORIDE
     Dosage: 40 MILLIGRAM
     Route: 065
  2. DULOXETINE DELAYED-RELEASE CAPSULES USP 60 MG [Suspect]
     Active Substance: DULOXETINE HYDROCHLORIDE
     Indication: PRODUCT USED FOR UNKNOWN INDICATION
     Dosage: 60 MILLIGRAM
     Route: 065
     Dates: start: 201802
  3. DULOXETINE DELAYED-RELEASE CAPSULES USP 60 MG [Suspect]
     Active Substance: DULOXETINE HYDROCHLORIDE
     Dosage: 50 MILLIGRAM
     Route: 065

REACTIONS (7)
  - Headache [Unknown]
  - Withdrawal syndrome [Unknown]
  - Somnolence [Unknown]
  - Nausea [Unknown]
  - Dizziness [Unknown]
  - Malaise [Unknown]
  - Balance disorder [Unknown]
